FAERS Safety Report 4345684-1 (Version None)
Quarter: 2004Q2

REPORT INFORMATION
  Report Type: 
  Country: None (occurrence: None)
  Receive Date: 20040421
  Receipt Date: 20040412
  Transmission Date: 20050107
  Serious: Yes (Other)
  Sender: FDA-Public Use
  Company Number: US-JNJFOC-20040302467

PATIENT
  Age: 83 Year
  Sex: Female

DRUGS (7)
  1. TOPAMAX [Suspect]
     Indication: TREMOR
     Dosage: 25 MG, IN 1 DAY, ORAL
     Route: 048
  2. INDERAL LA [Concomitant]
  3. MYSOLINE [Concomitant]
  4. ALTACE [Concomitant]
  5. MECLIZINE [Concomitant]
  6. ACETYLSALICYLIC ACID SRT [Concomitant]
  7. KLONOPIN [Concomitant]

REACTIONS (3)
  - BLINDNESS UNILATERAL [None]
  - EYE HAEMORRHAGE [None]
  - RETINAL HAEMORRHAGE [None]
